FAERS Safety Report 13448201 (Version 1)
Quarter: 2017Q2

REPORT INFORMATION
  Report Type: Spontaneous
  Country: BR (occurrence: BR)
  Receive Date: 20170417
  Receipt Date: 20170417
  Transmission Date: 20170830
  Serious: Yes (Other)
  Sender: FDA-Public Use
  Company Number: BR-BRISTOL-MYERS SQUIBB COMPANY-BMS-2017-030953

PATIENT
  Sex: Female
  Weight: 69 kg

DRUGS (4)
  1. SOVALDI [Suspect]
     Active Substance: SOFOSBUVIR
     Indication: HEPATITIS C
     Dosage: UNK, QD
     Route: 065
  2. TAMOXIFENO [Concomitant]
     Indication: BREAST CANCER
     Dosage: UNK, QD
     Route: 065
  3. DAKLINZA [Suspect]
     Active Substance: DACLATASVIR
     Indication: HEPATITIS C
     Dosage: UNK, QD
     Route: 065
  4. ESCITALOPRAM [Concomitant]
     Active Substance: ESCITALOPRAM OXALATE
     Indication: ANTIDEPRESSANT THERAPY
     Dosage: UNK
     Route: 065

REACTIONS (6)
  - Drug prescribing error [Unknown]
  - Somnolence [Unknown]
  - Fatigue [Unknown]
  - Influenza [Unknown]
  - Pharyngitis [Unknown]
  - Immunodeficiency [Unknown]
